FAERS Safety Report 15599715 (Version 8)
Quarter: 2020Q2

REPORT INFORMATION
  Report Type: Spontaneous
  Country: CA (occurrence: CA)
  Receive Date: 20181108
  Receipt Date: 20200416
  Transmission Date: 20200713
  Serious: Yes (Hospitalization, Other)
  Sender: FDA-Public Use
  Company Number: CA-ALLERGAN-1852356US

PATIENT
  Sex: Male

DRUGS (70)
  1. CITALOPRAM HYDROBROMIDE - BP [Suspect]
     Active Substance: CITALOPRAM HYDROBROMIDE
     Indication: SCHIZOPHRENIA
     Dosage: 80 MG, QD
     Route: 065
     Dates: start: 200410, end: 200704
  2. ASENAPINE MALEATE - BP [Suspect]
     Active Substance: ASENAPINE MALEATE
     Indication: SCHIZOPHRENIA
     Dosage: 100 MG
     Route: 065
  3. ARIPIPRAZOLE. [Suspect]
     Active Substance: ARIPIPRAZOLE
     Indication: PSYCHOTHERAPY
  4. FLUPENTIXOL [Suspect]
     Active Substance: FLUPENTIXOL
     Indication: SCHIZOPHRENIA
     Dosage: 6 MG, QD
     Route: 065
     Dates: start: 200701, end: 200704
  5. LOXAPINE SUCCINATE. [Suspect]
     Active Substance: LOXAPINE SUCCINATE
     Indication: SCHIZOPHRENIA
     Dosage: 200 MG, QD
     Route: 065
     Dates: end: 2013
  6. OLANZAPINE. [Suspect]
     Active Substance: OLANZAPINE
     Indication: PSYCHOTIC DISORDER
     Dosage: 15 MG, QD
     Route: 065
     Dates: start: 200611, end: 200701
  7. CLOZAPINE. [Suspect]
     Active Substance: CLOZAPINE
     Indication: SCHIZOPHRENIA
     Dosage: 350 MG
     Route: 065
  8. GABAPENTIN. [Suspect]
     Active Substance: GABAPENTIN
     Indication: SCHIZOPHRENIA
     Dosage: 1800 MG, QD
     Route: 065
     Dates: start: 200807, end: 200811
  9. PERPHENAZINE. [Suspect]
     Active Substance: PERPHENAZINE
     Indication: PRODUCT USED FOR UNKNOWN INDICATION
     Dosage: 32 MG, QD
     Route: 065
  10. PERPHENAZINE. [Suspect]
     Active Substance: PERPHENAZINE
     Dosage: 32 MG, QD
     Route: 065
     Dates: start: 200612
  11. RISPERIDONE. [Suspect]
     Active Substance: RISPERIDONE
     Indication: SCHIZOPHRENIA
     Dosage: 3 MG, QD
     Route: 065
     Dates: start: 201404, end: 201404
  12. SODIUM VALPROATE [Concomitant]
     Active Substance: VALPROATE SODIUM
     Indication: AFFECTIVE DISORDER
     Dosage: UNK
     Dates: end: 200711
  13. LITHIUM CARBONATE. [Suspect]
     Active Substance: LITHIUM CARBONATE
     Indication: SCHIZOPHRENIA
     Dosage: 1050 MG, UNKNOWN
     Route: 065
  14. LOXAPINE SUCCINATE. [Suspect]
     Active Substance: LOXAPINE SUCCINATE
     Indication: PSYCHOTIC DISORDER
     Dosage: 75 MG, QD
     Route: 065
     Dates: end: 200812
  15. OLANZAPINE. [Suspect]
     Active Substance: OLANZAPINE
     Dosage: 20 MG
  16. QUETIAPINE FUMARATE. [Suspect]
     Active Substance: QUETIAPINE FUMARATE
     Indication: SCHIZOPHRENIA
     Dosage: 600 MG, QD
     Route: 065
     Dates: start: 200903
  17. ZELDOX [Suspect]
     Active Substance: ZIPRASIDONE
     Indication: SCHIZOPHRENIA
     Dosage: 100 MG, QD
     Route: 065
     Dates: start: 2012, end: 2012
  18. CLOMIPRAMINE HYDROCHLORIDE. [Concomitant]
     Active Substance: CLOMIPRAMINE HYDROCHLORIDE
  19. TRIFLUOPERAZINE HYDROCHLORIDE. [Concomitant]
     Active Substance: TRIFLUOPERAZINE HYDROCHLORIDE
  20. FLUOXETINE HYDROCHLORIDE. [Suspect]
     Active Substance: FLUOXETINE HYDROCHLORIDE
     Indication: ANTIDEPRESSANT THERAPY
  21. AMISULPRIDE [Suspect]
     Active Substance: AMISULPRIDE
     Indication: SCHIZOPHRENIA
     Dosage: 30 MG
  22. FLUPENTIXOL [Suspect]
     Active Substance: FLUPENTIXOL
     Indication: PSYCHOTIC DISORDER
  23. GABAPENTIN. [Suspect]
     Active Substance: GABAPENTIN
     Indication: AFFECTIVE DISORDER
     Dosage: 600 MG, QD
     Route: 065
     Dates: start: 200704, end: 200706
  24. HALOPERIDOL. [Suspect]
     Active Substance: HALOPERIDOL
     Indication: PSYCHOTIC DISORDER
     Dosage: 5 MG
  25. LITHIUM CARBONATE. [Suspect]
     Active Substance: LITHIUM CARBONATE
     Indication: PRODUCT USED FOR UNKNOWN INDICATION
     Dosage: 1800 MG, QD
     Route: 065
     Dates: start: 200101, end: 200703
  26. LITHIUM. [Suspect]
     Active Substance: LITHIUM
     Dosage: 1050 MG, QD
     Route: 065
     Dates: end: 200807
  27. LITHIUM. [Suspect]
     Active Substance: LITHIUM
     Dosage: 1800 MG, QD
     Route: 065
     Dates: start: 200101, end: 200703
  28. OLANZAPINE. [Suspect]
     Active Substance: OLANZAPINE
     Indication: SCHIZOPHRENIA
     Dosage: 40 MG, QD
     Route: 065
     Dates: start: 200704, end: 200801
  29. OLANZAPINE. [Suspect]
     Active Substance: OLANZAPINE
     Indication: PRODUCT USED FOR UNKNOWN INDICATION
     Dosage: 20 MG, QD
     Route: 065
     Dates: start: 200101, end: 200404
  30. PERPHENAZINE. [Suspect]
     Active Substance: PERPHENAZINE
     Indication: PSYCHOTIC DISORDER
     Dosage: UNK UNK, QD
     Route: 065
     Dates: start: 200604
  31. RISPERIDONE. [Suspect]
     Active Substance: RISPERIDONE
     Indication: PSYCHOTIC DISORDER
     Dosage: 8 MG, QD
     Route: 065
     Dates: start: 2011, end: 2013
  32. THIORIDAZINE [Suspect]
     Active Substance: THIORIDAZINE
     Indication: SCHIZOPHRENIA
     Dosage: UNK MG
     Route: 048
     Dates: end: 20070628
  33. TRIFLUOPERAZINE HYDROCHLORIDE. [Suspect]
     Active Substance: TRIFLUOPERAZINE HYDROCHLORIDE
     Indication: SCHIZOPHRENIA
     Dosage: 50 MG, QD
     Route: 065
     Dates: start: 20080326, end: 20090319
  34. ASENAPINE MALEATE - BP [Suspect]
     Active Substance: ASENAPINE MALEATE
     Indication: PSYCHOTIC DISORDER
     Dosage: 600 MG
     Route: 065
     Dates: start: 2012, end: 2012
  35. AMISULPRIDE [Suspect]
     Active Substance: AMISULPRIDE
     Indication: PSYCHOTHERAPY
     Dosage: 1200 MG, QD
     Route: 065
     Dates: start: 201401
  36. HALOPERIDOL. [Suspect]
     Active Substance: HALOPERIDOL
     Indication: PRODUCT USED FOR UNKNOWN INDICATION
     Dosage: 6 MG
  37. LITHIUM CARBONATE. [Suspect]
     Active Substance: LITHIUM CARBONATE
     Dosage: 1050 MG, QD
     Route: 065
     Dates: end: 200807
  38. LITHIUM. [Suspect]
     Active Substance: LITHIUM
     Indication: AFFECTIVE DISORDER
     Dosage: 2400 MG, QD
     Route: 065
  39. RISPERIDONE. [Suspect]
     Active Substance: RISPERIDONE
     Dosage: 4 MG, QD
     Route: 065
     Dates: end: 200708
  40. ABILIFY [Concomitant]
     Active Substance: ARIPIPRAZOLE
     Indication: SCHIZOPHRENIA
     Dosage: 30 MG
  41. FLUOXETINE [Concomitant]
     Active Substance: FLUOXETINE HYDROCHLORIDE
  42. LOXAPINE. [Concomitant]
     Active Substance: LOXAPINE
  43. THIORIDAZINE [Concomitant]
     Active Substance: THIORIDAZINE
  44. ZIPRASIDONE MESILATE [Concomitant]
     Active Substance: ZIPRASIDONE
  45. CLOZAPINE. [Suspect]
     Active Substance: CLOZAPINE
     Indication: DEPRESSION
     Dosage: 350 MG, QD
     Route: 065
     Dates: start: 200404, end: 200611
  46. GABAPENTIN. [Suspect]
     Active Substance: GABAPENTIN
     Indication: PRODUCT USED FOR UNKNOWN INDICATION
     Dosage: UNK
     Dates: end: 200811
  47. HALOPERIDOL. [Suspect]
     Active Substance: HALOPERIDOL
     Indication: SCHIZOPHRENIA
     Dosage: 5 MG, QD
     Route: 065
     Dates: start: 2006, end: 2006
  48. THIORIDAZINE [Suspect]
     Active Substance: THIORIDAZINE
     Indication: PSYCHOTIC DISORDER
  49. QUETIAPINE FUMARATE. [Suspect]
     Active Substance: QUETIAPINE FUMARATE
     Indication: PRODUCT USED FOR UNKNOWN INDICATION
  50. PROZAC [Suspect]
     Active Substance: FLUOXETINE HYDROCHLORIDE
     Indication: SCHIZOPHRENIA
     Dosage: 80 MG
  51. ZIPRASIDONE. [Suspect]
     Active Substance: ZIPRASIDONE
     Indication: SCHIZOPHRENIA
     Dosage: 100 MG
  52. VALPROATE [Concomitant]
     Active Substance: VALPROIC ACID
     Dosage: UNK
  53. GABAPENTIN. [Concomitant]
     Active Substance: GABAPENTIN
  54. CITALOPRAM HYDROBROMIDE - BP [Suspect]
     Active Substance: CITALOPRAM HYDROBROMIDE
     Indication: DEPRESSION
  55. ARIPIPRAZOLE. [Suspect]
     Active Substance: ARIPIPRAZOLE
     Indication: SCHIZOPHRENIA
     Dosage: 30 MG, QD
     Route: 065
     Dates: start: 2011
  56. CLOMIPRAMINE HYDROCHLORIDE. [Suspect]
     Active Substance: CLOMIPRAMINE HYDROCHLORIDE
     Indication: SCHIZOPHRENIA
     Dosage: 250 MG, QD
     Route: 065
     Dates: start: 200803, end: 200903
  57. LITHIUM CARBONATE. [Suspect]
     Active Substance: LITHIUM CARBONATE
     Indication: AFFECTIVE DISORDER
     Dosage: 2400 MG, QD
     Route: 065
  58. LITHIUM CARBONATE. [Suspect]
     Active Substance: LITHIUM CARBONATE
     Dosage: 1800 MG, QD
     Route: 065
  59. PERPHENAZINE. [Suspect]
     Active Substance: PERPHENAZINE
     Indication: SCHIZOPHRENIA
     Dosage: UNK
     Route: 065
  60. RISPERIDONE. [Suspect]
     Active Substance: RISPERIDONE
     Dosage: 3 MG, QD
     Route: 065
     Dates: start: 199904, end: 200404
  61. HALOPERIDOL DECANOATE. [Suspect]
     Active Substance: HALOPERIDOL DECANOATE
     Indication: SCHIZOPHRENIA
     Dosage: 5 MG
     Route: 030
  62. SODIUM VALPROATE [Concomitant]
     Active Substance: VALPROATE SODIUM
     Indication: SCHIZOPHRENIA
     Dosage: UNK
     Dates: end: 200711
  63. FLUOXETINE HYDROCHLORIDE. [Suspect]
     Active Substance: FLUOXETINE HYDROCHLORIDE
     Indication: SCHIZOPHRENIA
     Dosage: 80 MG, QD
     Route: 065
     Dates: start: 200711, end: 200903
  64. GABAPENTIN. [Suspect]
     Active Substance: GABAPENTIN
     Dosage: 1600 MG, UNKNOWN
  65. LOXAPINE SUCCINATE. [Suspect]
     Active Substance: LOXAPINE SUCCINATE
     Dosage: 50 MG, QD
     Route: 065
     Dates: end: 200611
  66. TRIFLUOPERAZINE HYDROCHLORIDE. [Suspect]
     Active Substance: TRIFLUOPERAZINE HYDROCHLORIDE
     Indication: PSYCHOTIC DISORDER
     Dosage: 5 UNK
  67. QUETIAPINE FUMARATE. [Suspect]
     Active Substance: QUETIAPINE FUMARATE
     Indication: PSYCHOTIC DISORDER
     Dosage: 600 UNK
     Route: 005
  68. ZIPRASIDONE. [Suspect]
     Active Substance: ZIPRASIDONE
     Dosage: UNK
     Route: 048
  69. FLUPENTIXOL [Concomitant]
     Active Substance: FLUPENTIXOL
  70. QUETIAPINE FUMARATE. [Concomitant]
     Active Substance: QUETIAPINE FUMARATE

REACTIONS (22)
  - Leukopenia [Unknown]
  - Leukaemia [Unknown]
  - Product use in unapproved indication [Unknown]
  - Obesity [Unknown]
  - Akathisia [Unknown]
  - Schizoaffective disorder [Unknown]
  - Irritability [Unknown]
  - Antipsychotic drug level below therapeutic [Unknown]
  - Toxicity to various agents [Unknown]
  - Hypertension [Unknown]
  - Dyslipidaemia [Unknown]
  - Suicide attempt [Unknown]
  - Therapeutic product effect incomplete [Unknown]
  - Therapeutic product effect variable [Unknown]
  - Drug ineffective [Unknown]
  - Disinhibition [Unknown]
  - Obsessive-compulsive disorder [Unknown]
  - Prescribed overdose [Unknown]
  - Off label use [Unknown]
  - Weight increased [Unknown]
  - Euphoric mood [Unknown]
  - Increased appetite [Unknown]
